FAERS Safety Report 8408628 (Version 9)
Quarter: 2014Q3

REPORT INFORMATION
  Report Type: Spontaneous
  Country: US (occurrence: US)
  Receive Date: 20120216
  Receipt Date: 20140828
  Transmission Date: 20150326
  Serious: Yes (Death, Life-Threatening, Congenital Anomaly, Other)
  Sender: FDA-Public Use
  Company Number: US-PFIZER INC-2012038322

PATIENT
  Sex: Female
  Weight: 3 kg

DRUGS (12)
  1. EFFEXOR [Suspect]
     Active Substance: VENLAFAXINE HYDROCHLORIDE
     Dosage: 75 MG, 2X/DAY
     Route: 064
     Dates: start: 20080614
  2. OXYTOCIN. [Concomitant]
     Active Substance: OXYTOCIN
     Dosage: 20UNITS, UNK
     Route: 064
     Dates: start: 20100210
  3. MOTRIN [Concomitant]
     Active Substance: IBUPROFEN
     Indication: PAIN
     Dosage: 400 MG, UNK
     Route: 064
     Dates: start: 20100210
  4. EFFEXOR [Suspect]
     Active Substance: VENLAFAXINE HYDROCHLORIDE
     Dosage: UNK
     Route: 064
     Dates: start: 20071126
  5. PRENATAL VITAMINS [Concomitant]
     Active Substance: VITAMINS
     Dosage: UNK
     Route: 064
  6. TYLENOL [Concomitant]
     Active Substance: ACETAMINOPHEN
     Indication: PAIN
     Dosage: 650 MG, UNK
     Route: 064
     Dates: start: 20100210
  7. SOLIA [Concomitant]
     Active Substance: DESOGESTREL\ETHINYL ESTRADIOL
     Dosage: 0.15-0.03MG, UNK
     Route: 064
     Dates: start: 20090629
  8. ZOLPIDEM [Concomitant]
     Active Substance: ZOLPIDEM\ZOLPIDEM TARTRATE
     Indication: PAIN
     Dosage: 5 MG, UNK
     Route: 064
     Dates: start: 20100210
  9. FOLIC ACID. [Concomitant]
     Active Substance: FOLIC ACID
     Dosage: UNK
     Route: 064
     Dates: start: 20100205
  10. OXYCODONE [Concomitant]
     Active Substance: OXYCODONE
     Indication: PAIN
     Dosage: UNK
     Route: 064
     Dates: start: 20100210
  11. EFFEXOR [Suspect]
     Active Substance: VENLAFAXINE HYDROCHLORIDE
     Indication: MOOD SWINGS
     Dosage: ON AND OFF, UNK
     Route: 064
     Dates: start: 2004
  12. EFFEXOR XR [Suspect]
     Active Substance: VENLAFAXINE HYDROCHLORIDE
     Indication: DEPRESSION
     Dosage: 75 MG, 1X/DAY
     Route: 064
     Dates: start: 20060821

REACTIONS (20)
  - Mitral valve hypoplasia [Unknown]
  - Congenital aortic valve incompetence [Unknown]
  - Congenital aortic anomaly [Fatal]
  - Premature baby [Fatal]
  - Vascular malformation [Unknown]
  - Aortic valve atresia [Fatal]
  - Subvalvular aortic stenosis [Unknown]
  - Shone complex [Unknown]
  - Dilatation ventricular [Unknown]
  - Hypoplastic left heart syndrome [Fatal]
  - Congenital heart valve disorder [Fatal]
  - Dilatation ventricular [Fatal]
  - Patent ductus arteriosus [Unknown]
  - Maternal exposure timing unspecified [Fatal]
  - Congenital choroid plexus cyst [Unknown]
  - Atrial septal defect [Fatal]
  - Congenital mitral valve stenosis [Unknown]
  - Heart disease congenital [Unknown]
  - Left atrial dilatation [Unknown]
  - Left ventricular dysfunction [Unknown]

NARRATIVE: CASE EVENT DATE: 20100211
